FAERS Safety Report 22192256 (Version 10)
Quarter: 2024Q1

REPORT INFORMATION
  Report Type: Spontaneous
  Country: CA (occurrence: CA)
  Receive Date: 20230410
  Receipt Date: 20240305
  Transmission Date: 20240409
  Serious: Yes (Other)
  Sender: FDA-Public Use
  Company Number: CA-CELLTRION INC.-2021CA015916

PATIENT

DRUGS (33)
  1. INFLECTRA [Suspect]
     Active Substance: INFLIXIMAB-DYYB
     Indication: Rheumatoid arthritis
     Dosage: 242 MG, 0, 2, 6 AND EVERY 8 WEEKS
     Route: 042
     Dates: start: 20170510, end: 20180207
  2. INFLECTRA [Suspect]
     Active Substance: INFLIXIMAB-DYYB
     Dosage: 258 MG, EVERY 8 WEEKS
     Route: 042
     Dates: start: 20180404
  3. INFLECTRA [Suspect]
     Active Substance: INFLIXIMAB-DYYB
     Dosage: UNK
     Route: 042
     Dates: start: 20210811, end: 20210811
  4. INFLECTRA [Suspect]
     Active Substance: INFLIXIMAB-DYYB
     Dosage: 258 MG, EVERY 8 WEEKS
     Route: 042
     Dates: start: 20211006
  5. INFLECTRA [Suspect]
     Active Substance: INFLIXIMAB-DYYB
     Dosage: 258 MG, EVERY 8 WEEKS
     Route: 042
     Dates: start: 20211201
  6. INFLECTRA [Suspect]
     Active Substance: INFLIXIMAB-DYYB
     Dosage: 258 MG, EVERY 8 WEEKS
     Route: 042
     Dates: start: 20220202
  7. INFLECTRA [Suspect]
     Active Substance: INFLIXIMAB-DYYB
     Dosage: 258 MG, EVERY 8 WEEKS
     Route: 042
     Dates: start: 20220330
  8. INFLECTRA [Suspect]
     Active Substance: INFLIXIMAB-DYYB
     Dosage: 258 MG, EVERY 8 WEEKS
     Route: 042
     Dates: start: 20220525, end: 20220525
  9. INFLECTRA [Suspect]
     Active Substance: INFLIXIMAB-DYYB
     Dosage: 258 MG, EVERY 8 WEEKS
     Route: 042
     Dates: start: 20220720, end: 20220720
  10. INFLECTRA [Suspect]
     Active Substance: INFLIXIMAB-DYYB
     Dosage: 258 MG, EVERY 8 WEEKS, SUPPOSED TO RECEIVE 270 MG
     Route: 042
     Dates: start: 20220914, end: 20220914
  11. INFLECTRA [Suspect]
     Active Substance: INFLIXIMAB-DYYB
     Dosage: 270 MG, EVERY 8 WEEKS
     Route: 042
     Dates: start: 20221201, end: 20221201
  12. INFLECTRA [Suspect]
     Active Substance: INFLIXIMAB-DYYB
     Dosage: 270 MG, EVERY 8 WEEKS
     Route: 042
     Dates: start: 20230125
  13. INFLECTRA [Suspect]
     Active Substance: INFLIXIMAB-DYYB
     Dosage: 270 MG, EVERY 8 WEEKS
     Route: 042
     Dates: start: 20230322
  14. INFLECTRA [Suspect]
     Active Substance: INFLIXIMAB-DYYB
     Dosage: 270 MG EVERY 8 WEEKS
     Route: 042
     Dates: start: 20230516
  15. INFLECTRA [Suspect]
     Active Substance: INFLIXIMAB-DYYB
     Dosage: 270 MG, EVERY 8 WEEKS
     Route: 042
     Dates: start: 20230711
  16. INFLECTRA [Suspect]
     Active Substance: INFLIXIMAB-DYYB
     Dosage: 270 MG, EVERY 8 WEEKS
     Route: 042
     Dates: start: 20230908, end: 20230908
  17. INFLECTRA [Suspect]
     Active Substance: INFLIXIMAB-DYYB
     Dosage: 270 MG, EVERY 8 WEEKS
     Route: 042
     Dates: start: 20231103
  18. INFLECTRA [Suspect]
     Active Substance: INFLIXIMAB-DYYB
     Dosage: 270 MG, EVERY 8 WEEKS
     Route: 042
     Dates: start: 20231229
  19. INFLECTRA [Suspect]
     Active Substance: INFLIXIMAB-DYYB
     Dosage: 270 MG, EVERY 8 WEEKS
     Route: 042
     Dates: start: 20240223
  20. ACETAMINOPHEN [Concomitant]
     Active Substance: ACETAMINOPHEN
     Indication: Premedication
     Dosage: 975 MG
     Dates: start: 20240223, end: 20240223
  21. ATORVASTATIN [Concomitant]
     Active Substance: ATORVASTATIN
     Dosage: 40 MG, 1X/DAY
  22. CALCIUM\VITAMIN D [Concomitant]
     Active Substance: CALCIUM\VITAMIN D
     Dosage: 1 DF, DOSAGE NOT AVAILABLE
     Route: 065
  23. LEVOTHYROXINE [Concomitant]
     Active Substance: LEVOTHYROXINE\LEVOTHYROXINE SODIUM
     Dosage: 100 UG, 1X/DAY
     Route: 065
     Dates: start: 20170620
  24. INFLUENZA VIRUS VACCINE [Concomitant]
     Active Substance: INFLUENZA VIRUS VACCINE
     Indication: Immunisation
     Dosage: DOSE NUMBER UNKNOWN, SINGLE
     Dates: start: 20231110, end: 20231110
  25. LEFLUNOMIDE [Concomitant]
     Active Substance: LEFLUNOMIDE
     Dosage: 10 MG, 1X/DAY
     Route: 065
  26. METHYLPREDNISOLONE [Concomitant]
     Active Substance: METHYLPREDNISOLONE
     Indication: Premedication
     Dosage: 80 MG
     Dates: start: 20240223, end: 20240223
  27. METFORMIN [Concomitant]
     Active Substance: METFORMIN HYDROCHLORIDE
     Dosage: 500 MG, 1X/DAY
     Route: 065
  28. METHOTREXATE [Concomitant]
     Active Substance: METHOTREXATE
     Dosage: 1 DF
     Dates: end: 2021
  29. PANTOPRAZOLE [Concomitant]
     Active Substance: PANTOPRAZOLE
     Dosage: 40 MG, DOSAGE NOT AVAILABLE
     Route: 065
  30. PREDNISONE [Concomitant]
     Active Substance: PREDNISONE
     Dosage: 1 DF, INTERMITTENTLY WITH VARIABLE DOSING - UNKNOWN IF ONGOING
     Route: 065
  31. RISEDRONATE SODIUM [Concomitant]
     Active Substance: RISEDRONATE SODIUM
     Indication: Osteoporosis
     Dosage: 1 DF, MONTHLY (DOSAGE NOT AVAILABLE)
     Route: 065
  32. SYNTHROID [Concomitant]
     Active Substance: LEVOTHYROXINE SODIUM
     Dosage: 112 UG, 1X/DAY
  33. VITAMIN B12 [Concomitant]
     Active Substance: CYANOCOBALAMIN
     Dosage: 1 DF, DOSAGE NOT AVAILABLE
     Route: 065

REACTIONS (18)
  - Rib fracture [Unknown]
  - Hand fracture [Recovering/Resolving]
  - Diabetes mellitus [Unknown]
  - Blood pressure increased [Recovered/Resolved]
  - Blood pressure diastolic decreased [Unknown]
  - Oropharyngeal pain [Recovered/Resolved]
  - Nasal congestion [Recovered/Resolved]
  - Psoriasis [Unknown]
  - Rash [Not Recovered/Not Resolved]
  - Heart rate irregular [Recovered/Resolved]
  - COVID-19 [Recovered/Resolved]
  - Cough [Unknown]
  - Blood pressure systolic increased [Not Recovered/Not Resolved]
  - Influenza [Unknown]
  - Abscess limb [Not Recovered/Not Resolved]
  - Blood pressure fluctuation [Not Recovered/Not Resolved]
  - Fungal infection [Unknown]
  - Body temperature increased [Unknown]

NARRATIVE: CASE EVENT DATE: 20210101
